FAERS Safety Report 6804162-8 (Version None)
Quarter: 2010Q2

REPORT INFORMATION
  Report Type: 
  Country: None (occurrence: None)
  Receive Date: 20100628
  Receipt Date: 20100618
  Transmission Date: 20101027
  Serious: Yes (Hospitalization, Other)
  Sender: FDA-Public Use
  Company Number: US-ABBOTT-10P-163-0653019-00

PATIENT
  Sex: Female
  Weight: 55.842 kg

DRUGS (10)
  1. HUMIRA [Suspect]
     Indication: RHEUMATOID ARTHRITIS
     Dosage: PATIENT OFF HUMIRA FROM -SEPT-2009 UNTIL 14-JUN-2010 DUE TO SURGERIES
     Dates: start: 20070101, end: 20090901
  2. HUMIRA [Suspect]
     Indication: PYODERMA GANGRENOSUM
     Dates: start: 20100614
  3. HUMIRA [Suspect]
     Indication: CROHN'S DISEASE
  4. ASACOL [Concomitant]
     Indication: DRUG USE FOR UNKNOWN INDICATION
  5. DIOVAN [Concomitant]
     Indication: DRUG USE FOR UNKNOWN INDICATION
     Dosage: 160/12.5 MG
  6. LEVOTHYROXINE SODIUM [Concomitant]
     Indication: DRUG USE FOR UNKNOWN INDICATION
  7. FERROUS [Concomitant]
     Indication: DRUG USE FOR UNKNOWN INDICATION
  8. VITAMIN C [Concomitant]
     Indication: VITAMIN SUPPLEMENTATION
  9. CALCIUM CARBONATE [Concomitant]
     Indication: MINERAL SUPPLEMENTATION
  10. FENTANYL [Concomitant]
     Indication: PAIN
     Route: 062

REACTIONS (8)
  - ARTHRALGIA [None]
  - BLOOD CREATININE INCREASED [None]
  - COLON NEOPLASM [None]
  - CONDITION AGGRAVATED [None]
  - DIVERTICULITIS [None]
  - FREQUENT BOWEL MOVEMENTS [None]
  - RENAL FAILURE ACUTE [None]
  - RHEUMATOID ARTHRITIS [None]
